FAERS Safety Report 11334275 (Version 1)
Quarter: 2015Q3

REPORT INFORMATION
  Report Type: Spontaneous
  Country: US (occurrence: US)
  Receive Date: 20150803
  Receipt Date: 20150803
  Transmission Date: 20151125
  Serious: No
  Sender: FDA-Public Use
  Company Number: US-BIOMARINAP-US-2015-106981

PATIENT
  Sex: Male
  Weight: 24.72 kg

DRUGS (1)
  1. NAGLAZYME [Suspect]
     Active Substance: GALSULFASE
     Indication: MUCOPOLYSACCHARIDOSIS VI
     Dosage: UNK, QW
     Route: 041
     Dates: start: 20051012

REACTIONS (2)
  - Cardiac murmur [Not Recovered/Not Resolved]
  - Cardiac valve disease [Not Recovered/Not Resolved]
